FAERS Safety Report 9883589 (Version 3)
Quarter: 2016Q2

REPORT INFORMATION
  Report Type: Report from Study
  Country: US (occurrence: US)
  Receive Date: 20140210
  Receipt Date: 20160412
  Transmission Date: 20160815
  Serious: Yes (Hospitalization, Other)
  Sender: FDA-Public Use
  Company Number: US-AMGEN-USASP2014008300

PATIENT
  Age: 71 Year
  Sex: Female

DRUGS (1)
  1. ENBREL [Suspect]
     Active Substance: ETANERCEPT
     Indication: RHEUMATOID ARTHRITIS
     Dosage: 50 MG, QWK
     Route: 065
     Dates: start: 20030101

REACTIONS (15)
  - Amnesia [Unknown]
  - Memory impairment [Unknown]
  - Knee operation [Recovered/Resolved]
  - Aneurysm [Unknown]
  - Cough [Unknown]
  - Arthritis [Unknown]
  - Corrective lens user [Unknown]
  - Cardiac disorder [Unknown]
  - Brain operation [Unknown]
  - Gait disturbance [Unknown]
  - Injection site pain [Recovered/Resolved]
  - Cataract operation [Unknown]
  - Walking aid user [Unknown]
  - Post procedural contusion [Recovered/Resolved]
  - Intracranial aneurysm [Recovered/Resolved]

NARRATIVE: CASE EVENT DATE: 201110
